FAERS Safety Report 16819020 (Version 1)
Quarter: 2019Q3

REPORT INFORMATION
  Report Type: Spontaneous
  Country: NO (occurrence: NO)
  Receive Date: 20190917
  Receipt Date: 20190917
  Transmission Date: 20191005
  Serious: Yes (Disabling, Other)
  Sender: FDA-Public Use
  Company Number: NO-JNJFOC-20190912614

PATIENT
  Age: 37 Year
  Sex: Male
  Weight: 84 kg

DRUGS (3)
  1. FISH OIL                           /00492901/ [Concomitant]
     Active Substance: COD LIVER OIL
  2. BREXIDOL                           /00500401/ [Concomitant]
  3. SIMPONI [Suspect]
     Active Substance: GOLIMUMAB
     Indication: ANKYLOSING SPONDYLITIS
     Route: 058
     Dates: start: 20100516, end: 201902

REACTIONS (1)
  - Meningioma [Unknown]

NARRATIVE: CASE EVENT DATE: 20130710
